FAERS Safety Report 9139949 (Version 2)
Quarter: 2013Q1

REPORT INFORMATION
  Report Type: Spontaneous
  Country: BR (occurrence: BR)
  Receive Date: 20130305
  Receipt Date: 20130311
  Transmission Date: 20140127
  Serious: Yes (Death)
  Sender: FDA-Public Use
  Company Number: BR-PFIZER INC-2013075918

PATIENT
  Sex: Female

DRUGS (2)
  1. OLMETEC [Suspect]
     Dosage: UNK
  2. ALDACTONE [Suspect]
     Dosage: UNK

REACTIONS (1)
  - Death [Fatal]
